FAERS Safety Report 8015585-6 (Version None)
Quarter: 2011Q4

REPORT INFORMATION
  Report Type: 
  Country: None (occurrence: None)
  Receive Date: 20111230
  Receipt Date: 20111221
  Transmission Date: 20120403
  Serious: Yes (Other)
  Sender: FDA-Public Use
  Company Number: US-US-EMD SERONO, INC.-7094211

PATIENT
  Sex: Female

DRUGS (4)
  1. CHOLESTEROL MEDICATION [Concomitant]
  2. PREMPRO [Concomitant]
  3. CLONAZEPAM [Concomitant]
  4. EGRIFTA [Suspect]
     Indication: LIPODYSTROPHY ACQUIRED
     Route: 058
     Dates: start: 20111008, end: 20111122

REACTIONS (2)
  - CARPAL TUNNEL SYNDROME [None]
  - INJECTION SITE HAEMATOMA [None]
